FAERS Safety Report 11024991 (Version 1)
Quarter: 2015Q2

REPORT INFORMATION
  Report Type: Spontaneous
  Country: US (occurrence: None)
  Receive Date: 20150413
  Receipt Date: 20150413
  Transmission Date: 20150821
  Serious: No
  Sender: FDA-Public Use
  Company Number: None

PATIENT

DRUGS (2)
  1. DOXAZOSIN 4MG TABLETS [Suspect]
     Active Substance: DOXAZOSIN MESYLATE
  2. DOXAZOSIN 1 MG TABS [Suspect]
     Active Substance: DOXAZOSIN MESYLATE

REACTIONS (7)
  - Dizziness [None]
  - Malaise [None]
  - Wrong technique in drug usage process [None]
  - Medication error [None]
  - Hypotension [None]
  - Incorrect dose administered [None]
  - Drug dispensing error [None]

NARRATIVE: CASE EVENT DATE: 2015
